FAERS Safety Report 8376990-1 (Version None)
Quarter: 2012Q2

REPORT INFORMATION
  Report Type: 
  Country: None (occurrence: None)
  Receive Date: 20120522
  Receipt Date: 20120509
  Transmission Date: 20120825
  Serious: Yes (Other)
  Sender: FDA-Public Use
  Company Number: NO-ROCHE-1067684

PATIENT
  Sex: Male

DRUGS (3)
  1. CLONAZEPAM [Suspect]
     Route: 048
  2. CLONAZEPAM [Suspect]
     Indication: PRODUCT USED FOR UNKNOWN INDICATION
     Route: 048
  3. ESCITALOPRAM [Concomitant]

REACTIONS (8)
  - COGNITIVE DISORDER [None]
  - VISUAL IMPAIRMENT [None]
  - PSYCHOTIC BEHAVIOUR [None]
  - HEADACHE [None]
  - DRUG ABUSE [None]
  - PARAESTHESIA [None]
  - DYSGEUSIA [None]
  - HEARING IMPAIRED [None]
